FAERS Safety Report 5582578-8 (Version None)
Quarter: 2007Q4

REPORT INFORMATION
  Report Type: 
  Country: None (occurrence: None)
  Receive Date: 20071130
  Receipt Date: 20070406
  Transmission Date: 20080405
  Serious: Yes (Other)
  Sender: FDA-Public Use
  Company Number: WAES 0704USA01103

PATIENT
  Age: 57 Year
  Sex: Female

DRUGS (5)
  1. FOSAMAX [Suspect]
     Indication: OSTEOPOROSIS
     Dosage: 10 MG/DAILY/PO
     Route: 048
     Dates: start: 20010301, end: 20060101
  2. FOSAMAX [Suspect]
     Indication: OSTEOPOROSIS
     Dosage: 10 MG/DAILY/PO
     Route: 048
     Dates: start: 19990101
  3. AMOXICILLIN [Concomitant]
  4. HYDROCODONE BITARTRATE [Concomitant]
  5. PENICILLIN [Concomitant]

REACTIONS (7)
  - ANXIETY [None]
  - DEPRESSION [None]
  - FUNGAL INFECTION [None]
  - INCREASED TENDENCY TO BRUISE [None]
  - OSTEOMYELITIS [None]
  - OSTEONECROSIS [None]
  - TOOTH FRACTURE [None]
